FAERS Safety Report 7980764-0 (Version None)
Quarter: 2011Q4

REPORT INFORMATION
  Report Type: 
  Country: None (occurrence: None)
  Receive Date: 20111214
  Receipt Date: 20111102
  Transmission Date: 20120403
  Serious: No
  Sender: FDA-Public Use
  Company Number: US-BAYER-2011-108840

PATIENT
  Sex: Male

DRUGS (1)
  1. FINACEA [Suspect]
     Dosage: UNK

REACTIONS (1)
  - BURNING SENSATION [None]
